FAERS Safety Report 7968355-9 (Version None)
Quarter: 2011Q4

REPORT INFORMATION
  Report Type: 
  Country: None (occurrence: None)
  Receive Date: 20111209
  Receipt Date: 20111128
  Transmission Date: 20120403
  Serious: Yes (Hospitalization, Other)
  Sender: FDA-Public Use
  Company Number: US-BAYER-2011-045359

PATIENT
  Age: 24 Year
  Sex: Female
  Weight: 68.481 kg

DRUGS (15)
  1. YAZ [Suspect]
     Indication: CONTRACEPTION
     Dosage: UNK
     Route: 048
     Dates: start: 20060101, end: 20080101
  2. DROSPIRENONE AND ETHINYL ESTRADIOL [Suspect]
     Indication: PREMENSTRUAL SYNDROME
  3. PLAQUENIL [Concomitant]
     Dosage: 400 MG, DAILY
     Route: 048
  4. PHENERGAN [CEPHAEL SPP.,CHLOROF,CITRIC AC,DEXTROMET,PROMETHAZ,NA+, [Concomitant]
     Indication: NAUSEA
     Dosage: 25 MG, PRN
     Route: 048
  5. YAZ [Suspect]
     Indication: PREMENSTRUAL SYNDROME
  6. OXYCODONE HCL [Concomitant]
  7. PROTONIX [Concomitant]
     Dosage: 40 MG, BID
     Route: 048
  8. PERCOCET [OXYCODONE HYDROCHLORIDE,OXYCODONE TEREPHTHALATE,PARACETA [Concomitant]
     Indication: PAIN
     Dosage: UNK UNK, PRN
  9. YASMIN [Suspect]
     Indication: CONTRACEPTION
     Dosage: UNK
     Route: 048
     Dates: start: 20030101, end: 20060101
  10. DROSPIRENONE AND ETHINYL ESTRADIOL [Suspect]
     Indication: CONTRACEPTION
     Dosage: UNK
     Route: 048
     Dates: start: 20080101, end: 20100101
  11. NSAID'S [Concomitant]
  12. YASMIN [Suspect]
     Indication: PREMENSTRUAL SYNDROME
  13. PREDNISONE TAB [Concomitant]
     Indication: RHEUMATOID ARTHRITIS
     Dosage: 10 MG, DAILY
     Dates: start: 20090608
  14. OS-CAL [CALCIUM,ERGOCALCIFEROL] [Concomitant]
  15. LYRICA [Concomitant]
     Dosage: 150 MG, BID

REACTIONS (3)
  - PANCREATITIS [None]
  - CHOLECYSTITIS CHRONIC [None]
  - GALLBLADDER DISORDER [None]
